FAERS Safety Report 5234751-6 (Version None)
Quarter: 2007Q1

REPORT INFORMATION
  Report Type: 
  Country: None (occurrence: None)
  Receive Date: 20070209
  Receipt Date: 20070131
  Transmission Date: 20070707
  Serious: Yes (Death)
  Sender: FDA-Public Use
  Company Number: IT-ELI_LILLY_AND_COMPANY-IT200702000139

PATIENT
  Age: 5 Year
  Sex: Female

DRUGS (1)
  1. PANACEF [Suspect]
     Indication: PYREXIA
     Route: 048

REACTIONS (3)
  - ANAPHYLACTIC SHOCK [None]
  - ANGIOEDEMA [None]
  - VOMITING [None]
